FAERS Safety Report 16279225 (Version 1)
Quarter: 2019Q2

REPORT INFORMATION
  Report Type: Spontaneous
  Country: US (occurrence: US)
  Receive Date: 20190506
  Receipt Date: 20190506
  Transmission Date: 20190711
  Serious: No
  Sender: FDA-Public Use
  Company Number: US-JNJFOC-20190430665

PATIENT
  Sex: Male
  Weight: 99.79 kg

DRUGS (5)
  1. TYLENOL [Suspect]
     Active Substance: ACETAMINOPHEN
     Indication: MUSCULOSKELETAL PAIN
     Dosage: AS NEEDED
     Route: 048
     Dates: start: 2019
  2. ICY HOT [Concomitant]
     Active Substance: MENTHOL\METHYL SALICYLATE
     Indication: MYALGIA
     Route: 065
     Dates: start: 2019
  3. TYLENOL [Suspect]
     Active Substance: ACETAMINOPHEN
     Indication: MYALGIA
     Dosage: AS NEEDED
     Route: 048
     Dates: start: 2019
  4. XARELTO [Concomitant]
     Active Substance: RIVAROXABAN
     Indication: THROMBOSIS PROPHYLAXIS
     Route: 048
     Dates: start: 2014
  5. ICY HOT [Concomitant]
     Active Substance: MENTHOL\METHYL SALICYLATE
     Indication: MUSCULOSKELETAL PAIN
     Route: 065
     Dates: start: 2019

REACTIONS (1)
  - Therapeutic product effect incomplete [Unknown]
